FAERS Safety Report 21370062 (Version 1)
Quarter: 2022Q3

REPORT INFORMATION
  Report Type: Spontaneous
  Country: US (occurrence: None)
  Receive Date: 20220922
  Receipt Date: 20220922
  Transmission Date: 20221027
  Serious: Yes (Hospitalization)
  Sender: FDA-Public Use
  Company Number: None

PATIENT
  Age: 59 Year
  Sex: Female

DRUGS (1)
  1. ICATIBANT ACETATE [Suspect]
     Active Substance: ICATIBANT ACETATE
     Indication: Immune system disorder
     Dosage: 30MG/3ML AS NEEDED SUBCUTANEOUS?
     Route: 058
     Dates: start: 20210513

REACTIONS (2)
  - Swelling [None]
  - Pharyngeal swelling [None]

NARRATIVE: CASE EVENT DATE: 20220901
